FAERS Safety Report 8996550 (Version 1)
Quarter: 2013Q1

REPORT INFORMATION
  Report Type: Spontaneous
  Country: US (occurrence: US)
  Receive Date: 20130104
  Receipt Date: 20130104
  Transmission Date: 20140127
  Serious: Yes (Other)
  Sender: FDA-Public Use
  Company Number: US-BAYER-2013-000508

PATIENT
  Age: 31 Year
  Sex: Female

DRUGS (5)
  1. YASMIN [Suspect]
     Indication: POLYCYSTIC OVARIES
  2. ATENOLOL W/HYDROCHLOROTHIAZIDE [Concomitant]
     Dosage: 100/25 MG
     Route: 048
     Dates: start: 20060523, end: 20120529
  3. OMNICEF [Concomitant]
  4. METFORMIN [Concomitant]
  5. IBUPROFEN [Concomitant]

REACTIONS (2)
  - Thrombophlebitis superficial [None]
  - Off label use [None]
